FAERS Safety Report 4660105-7 (Version None)
Quarter: 2005Q2

REPORT INFORMATION
  Report Type: 
  Country: None (occurrence: None)
  Receive Date: 20050510
  Receipt Date: 20050422
  Transmission Date: 20051028
  Serious: No
  Sender: FDA-Public Use
  Company Number: 200503467

PATIENT
  Age: 34 Year
  Sex: Female

DRUGS (1)
  1. BOTOX COSMETIC [Suspect]
     Indication: ACCIDENTAL EXPOSURE

REACTIONS (5)
  - INJURY [None]
  - PERIPHERAL NERVE INJURY [None]
  - PHARMACEUTICAL PRODUCT COMPLAINT [None]
  - TENDON INJURY [None]
  - VASCULAR INJURY [None]
